FAERS Safety Report 15942637 (Version 3)
Quarter: 2019Q1

REPORT INFORMATION
  Report Type: Spontaneous
  Country: US (occurrence: US)
  Receive Date: 20190209
  Receipt Date: 20190226
  Transmission Date: 20190417
  Serious: Yes (Other)
  Sender: FDA-Public Use
  Company Number: US-ASTRAZENECA-2018SF00355

PATIENT
  Age: 20016 Day
  Sex: Female

DRUGS (7)
  1. TORSEMIDE. [Concomitant]
     Active Substance: TORSEMIDE
  2. ASPIRIN. [Concomitant]
     Active Substance: ASPIRIN
  3. LOSARTAN. [Concomitant]
     Active Substance: LOSARTAN
  4. NEXIUM [Suspect]
     Active Substance: ESOMEPRAZOLE MAGNESIUM
     Route: 048
  5. PRILOSEC [Suspect]
     Active Substance: OMEPRAZOLE MAGNESIUM
     Route: 048
  6. AMLODIPINE [Concomitant]
     Active Substance: AMLODIPINE BESYLATE
  7. PREVACID [Suspect]
     Active Substance: LANSOPRAZOLE
     Route: 065

REACTIONS (4)
  - Acute kidney injury [Unknown]
  - Renal injury [Unknown]
  - Nephrogenic anaemia [Unknown]
  - Chronic kidney disease [Unknown]

NARRATIVE: CASE EVENT DATE: 20140124
